FAERS Safety Report 7605115-2 (Version None)
Quarter: 2011Q3

REPORT INFORMATION
  Report Type: 
  Country: None (occurrence: None)
  Receive Date: 20110713
  Receipt Date: 20110126
  Transmission Date: 20111222
  Serious: Yes (Other)
  Sender: FDA-Public Use
  Company Number: US-BAYER-200937680NA

PATIENT
  Age: 55 Year
  Sex: Male
  Weight: 95 kg

DRUGS (40)
  1. NEURONTIN [Concomitant]
     Dosage: 300 MG DAILY
     Route: 048
  2. SUFENTA PRESERVATIVE FREE [Concomitant]
     Dosage: UNK
     Route: 042
     Dates: start: 20020122, end: 20020122
  3. VERSED [Concomitant]
     Dosage: UNK
     Route: 042
     Dates: start: 20010630, end: 20010630
  4. DOPAMINE HCL [Concomitant]
     Dosage: 400 MG, UNK
     Route: 042
     Dates: start: 20010630, end: 20010630
  5. ANCEF [Concomitant]
     Dosage: 1 UNK, UNK
     Route: 042
     Dates: start: 20010630, end: 20010630
  6. LASIX [Concomitant]
     Dosage: 40 MG, UNK
     Route: 042
     Dates: start: 20010630, end: 20010630
  7. ZESTRIL [Concomitant]
  8. NORVASC [Concomitant]
     Dosage: 10 MG  DAILY
     Route: 048
  9. NORMOSOL [Concomitant]
     Dosage: UNK
     Route: 042
     Dates: start: 20020122, end: 20020122
  10. PHENYLEPHRINE HCL [Concomitant]
     Dosage: 50 MG, UNK
     Route: 042
     Dates: start: 20010630, end: 20010630
  11. ANCEF [Concomitant]
     Dosage: 2 G, UNK
     Route: 042
     Dates: start: 20010630, end: 20010630
  12. FENTANYL-100 [Concomitant]
     Dosage: 200 MG, UNK
     Route: 042
     Dates: start: 20010630, end: 20010630
  13. VALIUM [Concomitant]
     Dosage: 5 MG, UNK
     Route: 042
     Dates: start: 20010630, end: 20010630
  14. ISOFLURANE [Concomitant]
     Dosage: UNK
     Route: 042
     Dates: start: 20020122, end: 20020122
  15. PLAVIX [Concomitant]
     Dosage: 75 UNK DAILY
  16. MORPHINE SULFATE [Concomitant]
     Dosage: 5 MG, ONCE
     Dates: start: 20020120, end: 20020120
  17. PHYTONADIONE [Concomitant]
     Dosage: 10 MG, UNK
     Route: 042
     Dates: start: 20010630, end: 20010630
  18. CIPROFLOXACIN [Concomitant]
  19. TRASYLOL [Suspect]
     Dosage: 1000000 U, LOADING DOSE
     Route: 042
     Dates: start: 20030624, end: 20030624
  20. LIDOCAINE [Concomitant]
     Dosage: 200 MG, UNK
     Route: 042
     Dates: start: 20020122, end: 20020122
  21. BENADRYL [Concomitant]
     Dosage: 100 MG, UNK
     Route: 042
     Dates: start: 20010630, end: 20010630
  22. LASIX [Concomitant]
     Dosage: 20 MG, UNK
     Route: 042
     Dates: start: 20020122, end: 20020122
  23. BACITRACIN [Concomitant]
     Dosage: 50,000 X2
     Route: 042
  24. TRASYLOL [Suspect]
     Dosage: 1 ML, TEST DOSE
     Route: 042
     Dates: start: 20030624, end: 20030624
  25. TRASYLOL [Suspect]
     Dosage: 25 ML/HR, INFUSION DOSE
     Route: 042
     Dates: start: 20030624, end: 20030624
  26. ATROPINE [Concomitant]
     Dosage: 1 AMPULE
     Route: 042
     Dates: start: 20010630, end: 20010630
  27. DOPAMINE HCL [Concomitant]
     Dosage: UNK
     Route: 042
     Dates: start: 20020122
  28. VANCOMYCIN [Concomitant]
     Dosage: UNK
     Route: 042
     Dates: start: 20010630, end: 20010630
  29. LIDOCAINE [Concomitant]
     Dosage: 100 MG, UNK
     Route: 042
     Dates: start: 20010630, end: 20010630
  30. HEPARIN [Concomitant]
     Dosage: UNK
     Route: 042
     Dates: start: 20020122, end: 20020122
  31. TRASYLOL [Suspect]
     Indication: AORTIC ANEURYSM REPAIR
     Dosage: 1 ML, UNK
     Route: 042
     Dates: start: 20010701, end: 20010701
  32. TRASYLOL [Suspect]
     Indication: AORTIC BYPASS
     Dosage: UNK
     Dates: start: 20020122, end: 20020122
  33. ASPIRIN [Concomitant]
     Dosage: 240 MG, ONCE
     Dates: start: 20010630, end: 20010630
  34. PEPCID [Concomitant]
     Dosage: 40MG AT BEDTIME
     Route: 048
  35. LABETALOL HCL [Concomitant]
     Dosage: 200 MG, BID
     Route: 048
  36. VERSED [Concomitant]
     Dosage: UNK
     Route: 042
     Dates: start: 20020122, end: 20020122
  37. NORMOSOL [Concomitant]
     Dosage: 630 CC, UNK
     Route: 042
     Dates: start: 20010630, end: 20010630
  38. SUFENTA PRESERVATIVE FREE [Concomitant]
     Dosage: UNK
     Route: 042
     Dates: start: 20010630, end: 20010630
  39. AMIODARONE HCL [Concomitant]
     Dosage: 150 MG, UNK
     Route: 042
     Dates: start: 20010630, end: 20010630
  40. NAFCILLIN [Concomitant]
     Dosage: 1 GRAM X2
     Route: 042
     Dates: start: 20020122, end: 20020122

REACTIONS (6)
  - PAIN [None]
  - PSYCHIATRIC SYMPTOM [None]
  - RENAL FAILURE ACUTE [None]
  - RENAL FAILURE [None]
  - INJURY [None]
  - UNEVALUABLE EVENT [None]
